FAERS Safety Report 8856568 (Version 3)
Quarter: 2013Q1

REPORT INFORMATION
  Report Type: Spontaneous
  Country: US (occurrence: None)
  Receive Date: 20121018
  Receipt Date: 20121204
  Transmission Date: 20140127
  Serious: Yes (Hospitalization)
  Sender: FDA-Public Use
  Company Number: DKLU1085172

PATIENT
  Age: 32 Year
  Sex: Male

DRUGS (10)
  1. ONFI [Suspect]
     Indication: EPILEPSY
     Route: 048
  2. CARBAMAZEPINE [Suspect]
     Indication: PRODUCT USED FOR UNKNOWN INDICATION
     Dosage: WEANING OFF
     Route: 048
  3. PENICILLIN [Suspect]
  4. MAXIPIME [Suspect]
  5. AMPICILLIN [Suspect]
  6. AMPICILLIN [Suspect]
  7. CIPROFLOXACIN(CIPROFLOXACIN) [Concomitant]
  8. ALPRAZOLAM(ALPRAZOLAM) (ALPRAZOLAM) [Concomitant]
  9. CIPROFLOXACIN(CIPROFLOXACIN) (CAPSULE) [Concomitant]
  10. TEMAZEPAM(TEMAZEPAM) (30 MG, CAPSULE) [Concomitant]

REACTIONS (6)
  - Hypersensitivity [None]
  - Stevens-Johnson syndrome [None]
  - White blood cell count decreased [None]
  - Respiratory failure [None]
  - Atelectasis [None]
  - Pneumonia [None]
